FAERS Safety Report 4466129-7 (Version None)
Quarter: 2004Q3

REPORT INFORMATION
  Report Type: 
  Country: None (occurrence: None)
  Receive Date: 20040930
  Receipt Date: 20040917
  Transmission Date: 20050211
  Serious: Yes (Hospitalization)
  Sender: FDA-Public Use
  Company Number: 2004068232

PATIENT
  Age: 65 Year
  Sex: Male

DRUGS (7)
  1. NITROGLYCERIN [Suspect]
     Indication: ANGINA PECTORIS
     Dosage: 0.3 MG, ORAL AT LEAST A YEAR AND A HALF
     Route: 048
  2. FLUTICASONE PROPIONATE [Concomitant]
  3. SALMETEROL XINAFOATE (SALMETEROL XINAFOATE) [Concomitant]
  4. DILTIAZEM HYDROCHLORIDE [Concomitant]
  5. ALENDRONATE SODIUM [Concomitant]
  6. ATORVASTATIN (ATORVASTATIN) [Concomitant]
  7. SALBUTAMOL (SALBUTAMOL) [Concomitant]

REACTIONS (5)
  - ANGINA PECTORIS [None]
  - ASTHENIA [None]
  - DRUG INEFFECTIVE [None]
  - LOSS OF CONSCIOUSNESS [None]
  - PHARMACEUTICAL PRODUCT COMPLAINT [None]
